FAERS Safety Report 4907379-2 (Version None)
Quarter: 2006Q1

REPORT INFORMATION
  Report Type: 
  Country: None (occurrence: None)
  Receive Date: 20060208
  Receipt Date: 20060208
  Transmission Date: 20060701
  Serious: Yes (Death)
  Sender: FDA-Public Use
  Company Number: None

PATIENT
  Sex: Male
  Weight: 73 kg

DRUGS (2)
  1. CETUXIMAB (ERBITUX: MOAB: C225 CHIMERIC MONOCLONAL ANTIBODY) [Suspect]
     Indication: ADENOCARCINOMA
     Dosage: 475 MG
     Dates: start: 20060110, end: 20060110
  2. CETUXIMAB (ERBITUX: MOAB: C225 CHIMERIC MONOCLONAL ANTIBODY) [Suspect]
     Indication: GASTROOESOPHAGEAL CANCER
     Dosage: 475 MG
     Dates: start: 20060110, end: 20060110

REACTIONS (8)
  - BRONCHIECTASIS [None]
  - EMPHYSEMA [None]
  - PLEURAL EFFUSION [None]
  - PNEUMONIA ASPIRATION [None]
  - PNEUMONITIS [None]
  - PULMONARY FIBROSIS [None]
  - RADIATION PNEUMONITIS [None]
  - RESPIRATORY FAILURE [None]
